FAERS Safety Report 16182435 (Version 2)
Quarter: 2019Q2

REPORT INFORMATION
  Report Type: Spontaneous
  Country: FR (occurrence: FR)
  Receive Date: 20190410
  Receipt Date: 20190523
  Transmission Date: 20190711
  Serious: Yes (Death)
  Sender: FDA-Public Use
  Company Number: FR-ANIPHARMA-2019-FR-000071

PATIENT
  Age: 82 Year
  Sex: Female

DRUGS (8)
  1. RISPERIDONE. [Suspect]
     Active Substance: RISPERIDONE
     Dosage: .5 MG QD
     Route: 048
  2. INDAPAMIDE. [Suspect]
     Active Substance: INDAPAMIDE
     Dosage: 1.5 MG QD
     Route: 048
     Dates: start: 201901, end: 20190211
  3. TAHOR [Suspect]
     Active Substance: ATORVASTATIN CALCIUM
     Dosage: 80 MG QD
     Route: 048
     Dates: start: 201901, end: 20190211
  4. SERESTA [Suspect]
     Active Substance: OXAZEPAM
     Dosage: 10 MG QD
     Route: 048
  5. PAROXETINE. [Suspect]
     Active Substance: PAROXETINE
     Route: 048
     Dates: start: 20181206, end: 20190211
  6. TAMIFLU [Suspect]
     Active Substance: OSELTAMIVIR PHOSPHATE
     Dosage: 75 MG QD
     Route: 048
     Dates: start: 20190129, end: 20190206
  7. XARELTO [Suspect]
     Active Substance: RIVAROXABAN
     Dosage: 20 MG QD
     Route: 048
     Dates: start: 201901, end: 20190211
  8. CANDESARTAN. [Suspect]
     Active Substance: CANDESARTAN
     Indication: HYPERTENSION
     Dosage: 16 MG QD
     Route: 048
     Dates: start: 201901, end: 20190211

REACTIONS (3)
  - Hepatitis [Fatal]
  - Death [Fatal]
  - Acute kidney injury [Fatal]

NARRATIVE: CASE EVENT DATE: 20190209
